FAERS Safety Report 5169505-2 (Version None)
Quarter: 2006Q4

REPORT INFORMATION
  Report Type: 
  Country: None (occurrence: None)
  Receive Date: 20061204
  Receipt Date: 20061127
  Transmission Date: 20070319
  Serious: Yes (Other)
  Sender: FDA-Public Use
  Company Number: 2006145392

PATIENT
  Sex: Female
  Weight: 65.7716 kg

DRUGS (2)
  1. UNISOM [Suspect]
     Dosage: MORE THAN 132 TABLETS AT ONCE, ORAL
     Route: 048
     Dates: start: 20010101, end: 20010101
  2. ETHANOL (ETHANOL) [Suspect]
     Dosage: ORAL
     Route: 048
     Dates: start: 20010101, end: 20010101

REACTIONS (9)
  - AGGRESSION [None]
  - ALCOHOL USE [None]
  - ANGER [None]
  - FEELING ABNORMAL [None]
  - INCORRECT DOSE ADMINISTERED [None]
  - MEMORY IMPAIRMENT [None]
  - MENTAL DISORDER [None]
  - PERSONALITY CHANGE [None]
  - VOMITING [None]
